FAERS Safety Report 19477427 (Version 1)
Quarter: 2021Q2

REPORT INFORMATION
  Report Type: Spontaneous
  Country: US (occurrence: US)
  Receive Date: 20210630
  Receipt Date: 20210630
  Transmission Date: 20210717
  Serious: No
  Sender: FDA-Public Use
  Company Number: None

PATIENT
  Age: 85 Year
  Sex: Male

DRUGS (2)
  1. TICAGRELOR (TICAGRELOR 90MG TAB) [Suspect]
     Active Substance: TICAGRELOR
     Indication: CORONARY ARTERIAL STENT INSERTION
     Route: 048
     Dates: start: 20210620, end: 20210623
  2. HEPARIN (HEPARIN CA 25000 UNT/ML INJ) [Suspect]
     Active Substance: HEPARIN SODIUM
     Indication: CORONARY ARTERIAL STENT INSERTION
     Dosage: ?          OTHER FREQUENCY:SLIDING SCALE;?
     Route: 042
     Dates: start: 20210620, end: 20210621

REACTIONS (16)
  - Melaena [None]
  - Blood creatinine increased [None]
  - Angiodysplasia [None]
  - Duodenal ulcer [None]
  - Gastritis [None]
  - Gastric haemorrhage [None]
  - Oesophagitis [None]
  - Anaemia [None]
  - Duodenitis [None]
  - Haemorrhoidal haemorrhage [None]
  - Orthostatic hypotension [None]
  - Blood urea increased [None]
  - Tachycardia [None]
  - Gastric ulcer [None]
  - Haemoglobin decreased [None]
  - Neoplasm malignant [None]

NARRATIVE: CASE EVENT DATE: 20210622
